FAERS Safety Report 25758763 (Version 2)
Quarter: 2025Q4

REPORT INFORMATION
  Report Type: Spontaneous
  Country: CA (occurrence: CA)
  Receive Date: 20250904
  Receipt Date: 20251028
  Transmission Date: 20260118
  Serious: Yes (Other)
  Sender: CELLTRION
  Company Number: CA-PFIZER INC-202500171618

PATIENT

DRUGS (9)
  1. INFLECTRA [Suspect]
     Active Substance: INFLIXIMAB-DYYB
     Indication: Colitis ulcerative
     Dosage: 500 MG, EVERY 4 WEEKS
     Route: 042
     Dates: start: 20250716
  2. INFLECTRA [Suspect]
     Active Substance: INFLIXIMAB-DYYB
     Dosage: 500 MG, AFTER 5 WEEKS AND 6 DAYS (EVERY 4 WEEKS)
     Route: 042
     Dates: start: 20250826
  3. AZATHIOPRINE [Concomitant]
     Active Substance: AZATHIOPRINE
     Dosage: 1 DF, DOSAGE NOT AVAILABLE
     Route: 065
     Dates: start: 201901
  4. BRICANYL [Concomitant]
     Active Substance: TERBUTALINE SULFATE
     Dosage: 1 DF, DOSAGE NOT AVAILABLE
     Route: 065
  5. CORTISONE [Concomitant]
     Active Substance: CORTISONE
     Dosage: 1 DF, DOSAGE NOT AVAILABLE
     Route: 065
  6. CHOLECALCIFEROL [Concomitant]
     Active Substance: CHOLECALCIFEROL
     Dosage: 1 DF, DOSAGE NOT AVAILABLE
     Route: 065
  7. MESALAMINE [Concomitant]
     Active Substance: MESALAMINE
     Indication: Colitis ulcerative
     Dosage: 1 DF, DOSAGE NOT AVAILABLE
     Route: 065
     Dates: start: 201911
  8. PULMICORT TURBUHALER [Concomitant]
     Active Substance: BUDESONIDE
     Dosage: 1 DF, DOSAGE NOT AVAILABLE
     Route: 065
  9. PMS-FERROUS SULFATE [Concomitant]
     Dosage: 1 DF, DOSAGE NOT AVAILABLE
     Route: 065

REACTIONS (1)
  - Thermal burn [Recovering/Resolving]

NARRATIVE: CASE EVENT DATE: 20250101
